FAERS Safety Report 10455353 (Version 1)
Quarter: 2014Q3

REPORT INFORMATION
  Report Type: Spontaneous
  Country: US (occurrence: US)
  Receive Date: 20140916
  Receipt Date: 20140916
  Transmission Date: 20150326
  Serious: Yes (Death)
  Sender: FDA-Public Use
  Company Number: US-BEH-2014044984

PATIENT
  Age: 64 Year
  Sex: Male
  Weight: 124 kg

DRUGS (1)
  1. PRIVIGEN [Suspect]
     Active Substance: HUMAN IMMUNOGLOBULIN G
     Indication: IMMUNODEFICIENCY COMMON VARIABLE
     Dosage: ??-MAR-2014 TO ??-AUG-2014
     Route: 042

REACTIONS (1)
  - Death [Fatal]
